FAERS Safety Report 8065963-4 (Version None)
Quarter: 2012Q1

REPORT INFORMATION
  Report Type: 
  Country: None (occurrence: None)
  Receive Date: 20120124
  Receipt Date: 20120119
  Transmission Date: 20120608
  Serious: Yes (Disabling, Other)
  Sender: FDA-Public Use
  Company Number: BR-BAYER-2011-118863

PATIENT
  Age: 42 Year
  Sex: Female

DRUGS (2)
  1. ACETAMINOPHEN [Concomitant]
  2. INTERFERON BETA-1B [Suspect]
     Indication: MULTIPLE SCLEROSIS
     Dosage: UNK
     Route: 058
     Dates: start: 20110901

REACTIONS (6)
  - BLINDNESS [None]
  - MOBILITY DECREASED [None]
  - SENSATION OF HEAVINESS [None]
  - HYPOAESTHESIA [None]
  - BALANCE DISORDER [None]
  - PYREXIA [None]
